FAERS Safety Report 12069643 (Version 2)
Quarter: 2016Q1

REPORT INFORMATION
  Report Type: Other
  Country: JP (occurrence: JP)
  Receive Date: 20160211
  Receipt Date: 20160324
  Transmission Date: 20160526
  Serious: Yes (Other)
  Sender: FDA-Public Use
  Company Number: JP-GUERBET LLC-1047682

PATIENT
  Age: 7 Decade
  Sex: Male

DRUGS (3)
  1. ETHANOL [Concomitant]
     Active Substance: ALCOHOL
     Route: 013
  2. LIPIODOL [Suspect]
     Active Substance: ETHIODIZED OIL
     Indication: THERAPEUTIC EMBOLISATION
     Route: 013
  3. NBCA(N BUTYL-2-CYANOACRYLATE) [Concomitant]
     Route: 013

REACTIONS (1)
  - Liver abscess [Unknown]
